FAERS Safety Report 9092042 (Version 1)
Quarter: 2013Q1

REPORT INFORMATION
  Report Type: Report from Study
  Country: US (occurrence: US)
  Receive Date: 20130218
  Receipt Date: 20130218
  Transmission Date: 20140127
  Serious: No
  Sender: FDA-Public Use
  Company Number: US-ABBOTT-12P-163-0938151-00

PATIENT
  Sex: Male
  Weight: 108.96 kg

DRUGS (2)
  1. SIMCOR 1000MG/20MG [Suspect]
     Indication: LOW DENSITY LIPOPROTEIN DECREASED
     Dosage: 1000/20 MG X2 TABLETS
  2. UNKNOWN BLOOD PRESSURE MEDICATION [Concomitant]
     Indication: PRODUCT USED FOR UNKNOWN INDICATION

REACTIONS (3)
  - Middle insomnia [Unknown]
  - Total cholesterol/HDL ratio abnormal [Unknown]
  - Flushing [Not Recovered/Not Resolved]
